FAERS Safety Report 19731876 (Version 1)
Quarter: 2021Q3

REPORT INFORMATION
  Report Type: Report from Study
  Country: BR (occurrence: BR)
  Receive Date: 20210820
  Receipt Date: 20210820
  Transmission Date: 20211014
  Serious: Yes (Other)
  Sender: FDA-Public Use
  Company Number: BR-TAKEDA-2021TUS004680

PATIENT
  Age: 2 Year
  Sex: Male
  Weight: 19 kg

DRUGS (2)
  1. IDURSULFASE [Suspect]
     Active Substance: IDURSULFASE
     Indication: MUCOPOLYSACCHARIDOSIS II
     Dosage: 4.8 MILLILITER, 1/WEEK
     Route: 042
     Dates: start: 2020
  2. IDURSULFASE [Suspect]
     Active Substance: IDURSULFASE
     Dosage: 2 DOSAGE FORM, 1/WEEK
     Route: 042
     Dates: start: 202007

REACTIONS (17)
  - Pain [Unknown]
  - Off label use [Unknown]
  - Sensitivity to weather change [Unknown]
  - Gingival swelling [Recovered/Resolved]
  - Gastrointestinal infection [Unknown]
  - Fatigue [Not Recovered/Not Resolved]
  - Incorrect dose administered [Unknown]
  - Crying [Recovered/Resolved]
  - Eating disorder [Recovered/Resolved]
  - Intervertebral disc protrusion [Unknown]
  - Pyrexia [Recovered/Resolved]
  - Influenza [Recovering/Resolving]
  - Product dose omission issue [Unknown]
  - Vein rupture [Unknown]
  - Stress [Unknown]
  - Infusion site erythema [Unknown]
  - Poor venous access [Unknown]

NARRATIVE: CASE EVENT DATE: 20210104
